FAERS Safety Report 7351763-7 (Version None)
Quarter: 2011Q1

REPORT INFORMATION
  Report Type: 
  Country: None (occurrence: None)
  Receive Date: 20110315
  Receipt Date: 20110303
  Transmission Date: 20110831
  Serious: Yes (Hospitalization)
  Sender: FDA-Public Use
  Company Number: CA-JNJFOC-20110303696

PATIENT
  Sex: Male
  Weight: 75 kg

DRUGS (4)
  1. JANUVIA [Concomitant]
  2. LASIX [Concomitant]
  3. REMICADE [Suspect]
     Indication: CROHN'S DISEASE
     Dosage: FREQUENCY, EVERY 4 TO 6 WEEKS
     Route: 042
  4. METFORMIN [Concomitant]

REACTIONS (4)
  - LACERATION [None]
  - JOINT INJURY [None]
  - HAEMORRHOIDS [None]
  - HAEMORRHAGE [None]
